FAERS Safety Report 24612371 (Version 2)
Quarter: 2025Q3

REPORT INFORMATION
  Report Type: Spontaneous
  Country: CA (occurrence: CA)
  Receive Date: 20241113
  Receipt Date: 20250918
  Transmission Date: 20251021
  Serious: Yes (Death, Life-Threatening, Hospitalization, Disabling, Congenital Anomaly, Other)
  Sender: Haleon PLC
  Company Number: CA-002147023-NVSC2024CA109806

PATIENT
  Age: 48 Year
  Sex: Female

DRUGS (184)
  1. DICLOFENAC POTASSIUM [Suspect]
     Active Substance: DICLOFENAC POTASSIUM
     Indication: Product used for unknown indication
     Route: 065
  2. DICLOFENAC POTASSIUM [Suspect]
     Active Substance: DICLOFENAC POTASSIUM
     Route: 065
  3. DICLOFENAC POTASSIUM [Suspect]
     Active Substance: DICLOFENAC POTASSIUM
     Route: 058
  4. PERIOGARD [Suspect]
     Active Substance: CHLORHEXIDINE GLUCONATE
     Indication: Product used for unknown indication
     Route: 065
  5. OTEZLA [Suspect]
     Active Substance: APREMILAST
     Indication: Product used for unknown indication
     Dosage: 3 MG, BID
     Route: 048
  6. OTEZLA [Suspect]
     Active Substance: APREMILAST
     Route: 048
  7. PSEUDOEPHEDRINE HYDROCHLORIDE\TERFENADINE [Suspect]
     Active Substance: PSEUDOEPHEDRINE HYDROCHLORIDE\TERFENADINE
     Indication: Product used for unknown indication
     Route: 048
  8. PSEUDOEPHEDRINE HYDROCHLORIDE\TERFENADINE [Suspect]
     Active Substance: PSEUDOEPHEDRINE HYDROCHLORIDE\TERFENADINE
     Indication: Rheumatoid arthritis
  9. PREDNISONE [Suspect]
     Active Substance: PREDNISONE
     Indication: Rheumatoid arthritis
     Route: 048
  10. SIMPONI [Suspect]
     Active Substance: GOLIMUMAB
     Indication: Rheumatoid arthritis
     Route: 058
  11. SIMPONI [Suspect]
     Active Substance: GOLIMUMAB
     Route: 042
  12. SIMPONI [Suspect]
     Active Substance: GOLIMUMAB
     Route: 058
  13. SIMPONI [Suspect]
     Active Substance: GOLIMUMAB
     Route: 058
  14. COSENTYX [Concomitant]
     Active Substance: SECUKINUMAB
     Indication: Product used for unknown indication
  15. PREDNISONE [Suspect]
     Active Substance: PREDNISONE
     Indication: Rheumatoid arthritis
     Route: 065
  16. PREDNISONE [Suspect]
     Active Substance: PREDNISONE
     Indication: Condition aggravated
     Route: 065
  17. PREDNISONE [Suspect]
     Active Substance: PREDNISONE
     Route: 042
  18. PREDNISONE [Suspect]
     Active Substance: PREDNISONE
     Route: 065
  19. PREDNISONE [Suspect]
     Active Substance: PREDNISONE
     Route: 048
  20. PREDNISONE [Suspect]
     Active Substance: PREDNISONE
     Route: 048
  21. PREDNISONE [Suspect]
     Active Substance: PREDNISONE
     Route: 065
  22. PREDNISONE [Suspect]
     Active Substance: PREDNISONE
  23. PREDNISONE [Suspect]
     Active Substance: PREDNISONE
     Route: 048
  24. PREDNISONE [Suspect]
     Active Substance: PREDNISONE
  25. ORENCIA [Suspect]
     Active Substance: ABATACEPT
     Indication: Rheumatoid arthritis
     Route: 064
  26. ORENCIA [Suspect]
     Active Substance: ABATACEPT
     Indication: Product used for unknown indication
     Route: 058
  27. ORENCIA [Suspect]
     Active Substance: ABATACEPT
     Dosage: 17.8 MG, QD
     Route: 058
  28. ORENCIA [Suspect]
     Active Substance: ABATACEPT
     Route: 058
  29. ORENCIA [Suspect]
     Active Substance: ABATACEPT
     Dosage: 125 MG, QW
     Route: 058
  30. ORENCIA [Suspect]
     Active Substance: ABATACEPT
     Route: 064
  31. ORENCIA [Suspect]
     Active Substance: ABATACEPT
     Route: 048
  32. ORENCIA [Suspect]
     Active Substance: ABATACEPT
     Route: 058
  33. ORENCIA [Suspect]
     Active Substance: ABATACEPT
     Dosage: 125 MG, QW
     Route: 058
  34. ORENCIA [Suspect]
     Active Substance: ABATACEPT
     Route: 042
  35. ORENCIA [Suspect]
     Active Substance: ABATACEPT
     Dosage: 6 MG, QD
     Route: 048
  36. ORENCIA [Suspect]
     Active Substance: ABATACEPT
     Route: 042
  37. ORENCIA [Suspect]
     Active Substance: ABATACEPT
     Dosage: 17.8 MG, QD
     Route: 058
  38. ORENCIA [Suspect]
     Active Substance: ABATACEPT
     Route: 058
  39. SULFAMETHOXAZOLE [Suspect]
     Active Substance: SULFAMETHOXAZOLE
     Indication: Product used for unknown indication
     Route: 065
  40. PANTOPRAZOLE [Suspect]
     Active Substance: PANTOPRAZOLE
     Indication: Dyspepsia
     Route: 048
  41. VITAMIN B COMPLEX [Suspect]
     Active Substance: CYANOCOBALAMIN\DEXPANTHENOL\NIACINAMIDE\PYRIDOXINE HYDROCHLORIDE\RIBOFLAVIN 5^-PHOSPHATE SODIUM\THIA
     Indication: Product used for unknown indication
     Route: 065
  42. CETIRIZINE HYDROCHLORIDE\PSEUDOEPHEDRINE HYDROCHLORIDE [Suspect]
     Active Substance: CETIRIZINE HYDROCHLORIDE\PSEUDOEPHEDRINE HYDROCHLORIDE
     Indication: Rheumatoid arthritis
     Dosage: 10 MG, QD
     Route: 048
  43. CETIRIZINE HYDROCHLORIDE\PSEUDOEPHEDRINE HYDROCHLORIDE [Suspect]
     Active Substance: CETIRIZINE HYDROCHLORIDE\PSEUDOEPHEDRINE HYDROCHLORIDE
     Route: 067
  44. CETIRIZINE HYDROCHLORIDE\PSEUDOEPHEDRINE HYDROCHLORIDE [Suspect]
     Active Substance: CETIRIZINE HYDROCHLORIDE\PSEUDOEPHEDRINE HYDROCHLORIDE
     Dosage: TABLET- EXTENDED RELEASE
     Route: 048
  45. TOCILIZUMAB [Suspect]
     Active Substance: TOCILIZUMAB
     Indication: Rheumatoid arthritis
  46. TOCILIZUMAB [Suspect]
     Active Substance: TOCILIZUMAB
     Route: 042
  47. TOCILIZUMAB [Suspect]
     Active Substance: TOCILIZUMAB
     Route: 058
  48. SULFASALAZINE [Suspect]
     Active Substance: SULFASALAZINE
     Indication: Rheumatoid arthritis
     Dosage: 1000 MG, QD
     Route: 048
  49. SULFASALAZINE [Suspect]
     Active Substance: SULFASALAZINE
     Route: 048
  50. SULFASALAZINE [Suspect]
     Active Substance: SULFASALAZINE
     Route: 048
  51. SULFASALAZINE [Suspect]
     Active Substance: SULFASALAZINE
     Route: 048
  52. SULFASALAZINE [Suspect]
     Active Substance: SULFASALAZINE
     Route: 048
  53. SULFASALAZINE [Suspect]
     Active Substance: SULFASALAZINE
     Route: 048
  54. SULFASALAZINE [Suspect]
     Active Substance: SULFASALAZINE
     Route: 065
  55. SULFASALAZINE [Suspect]
     Active Substance: SULFASALAZINE
     Route: 065
  56. SULFASALAZINE [Suspect]
     Active Substance: SULFASALAZINE
     Route: 058
  57. MORPHINE [Suspect]
     Active Substance: MORPHINE
     Indication: Product used for unknown indication
     Route: 065
  58. VITAMIN C [Suspect]
     Active Substance: ASCORBIC ACID
     Indication: Product used for unknown indication
     Route: 048
  59. DICLOFENAC SODIUM [Suspect]
     Active Substance: DICLOFENAC SODIUM
     Indication: Product used for unknown indication
     Route: 065
  60. DICLOFENAC SODIUM [Suspect]
     Active Substance: DICLOFENAC SODIUM
     Route: 065
  61. DICLOFENAC SODIUM [Suspect]
     Active Substance: DICLOFENAC SODIUM
     Route: 065
  62. XELJANZ [Concomitant]
     Active Substance: TOFACITINIB CITRATE
     Indication: Product used for unknown indication
     Route: 065
  63. RITUXIMAB [Suspect]
     Active Substance: RITUXIMAB
     Indication: Rheumatoid arthritis
     Route: 058
  64. RITUXIMAB [Suspect]
     Active Substance: RITUXIMAB
     Route: 042
  65. PHTHALYLSULFATHIAZOLE [Suspect]
     Active Substance: PHTHALYLSULFATHIAZOLE
     Indication: Rheumatoid arthritis
     Dosage: 500 MG, QD
     Route: 048
  66. PHTHALYLSULFATHIAZOLE [Suspect]
     Active Substance: PHTHALYLSULFATHIAZOLE
     Route: 016
  67. PHTHALYLSULFATHIAZOLE [Suspect]
     Active Substance: PHTHALYLSULFATHIAZOLE
     Dosage: 1000 MG, QD
     Route: 016
  68. PHTHALYLSULFATHIAZOLE [Suspect]
     Active Substance: PHTHALYLSULFATHIAZOLE
     Dosage: 400 MG, QD
     Route: 065
  69. NEOMYCIN [Suspect]
     Active Substance: NEOMYCIN
     Indication: Product used for unknown indication
     Route: 048
  70. METHYLPREDNISOLONE SODIUM SUCCINATE [Suspect]
     Active Substance: METHYLPREDNISOLONE SODIUM SUCCINATE
     Indication: Product used for unknown indication
     Route: 065
  71. MINOCYCLINE HYDROCHLORIDE [Suspect]
     Active Substance: MINOCYCLINE HYDROCHLORIDE
     Indication: Rheumatoid arthritis
     Route: 065
  72. COSENTYX [Suspect]
     Active Substance: SECUKINUMAB
     Indication: Rheumatoid arthritis
     Route: 065
  73. COSENTYX [Suspect]
     Active Substance: SECUKINUMAB
     Indication: Product used for unknown indication
     Route: 005
  74. STELARA [Suspect]
     Active Substance: USTEKINUMAB
     Indication: Rheumatoid arthritis
     Route: 058
  75. STELARA [Suspect]
     Active Substance: USTEKINUMAB
     Route: 058
  76. TUMS ULTRA [Suspect]
     Active Substance: CALCIUM CARBONATE
     Indication: Product used for unknown indication
  77. ALENDRONIC ACID [Suspect]
     Active Substance: ALENDRONIC ACID
     Indication: Rheumatoid arthritis
     Route: 016
  78. ALENDRONIC ACID [Suspect]
     Active Substance: ALENDRONIC ACID
     Route: 048
  79. UNSPECIFIED INGREDIENT [Suspect]
     Active Substance: UNSPECIFIED INGREDIENT
     Indication: Product used for unknown indication
  80. PREDNISONE [Suspect]
     Active Substance: PREDNISONE
     Indication: Product used for unknown indication
     Route: 048
  81. PREDNISONE [Suspect]
     Active Substance: PREDNISONE
     Route: 048
  82. PREDNISONE [Suspect]
     Active Substance: PREDNISONE
     Route: 048
  83. ARAVA [Suspect]
     Active Substance: LEFLUNOMIDE
     Indication: Rheumatoid arthritis
     Route: 048
  84. ARAVA [Suspect]
     Active Substance: LEFLUNOMIDE
     Indication: Product used for unknown indication
     Route: 048
  85. ARAVA [Suspect]
     Active Substance: LEFLUNOMIDE
     Route: 005
  86. ARAVA [Suspect]
     Active Substance: LEFLUNOMIDE
     Route: 048
  87. ASACOL [Suspect]
     Active Substance: MESALAMINE
     Indication: Crohn^s disease
  88. AZATHIOPRINE [Suspect]
     Active Substance: AZATHIOPRINE
     Indication: Product used for unknown indication
  89. AMINOSALICYLATE CALCIUM [Suspect]
     Active Substance: AMINOSALICYLATE CALCIUM
     Indication: Product used for unknown indication
  90. CALCIUM GLUBIONATE [Suspect]
     Active Substance: CALCIUM GLUBIONATE
     Indication: Product used for unknown indication
  91. CALCIUM GLUBIONATE [Suspect]
     Active Substance: CALCIUM GLUBIONATE
     Route: 016
  92. CERTOLIZUMAB PEGOL [Suspect]
     Active Substance: CERTOLIZUMAB PEGOL
     Indication: Rheumatoid arthritis
  93. CERTOLIZUMAB PEGOL [Suspect]
     Active Substance: CERTOLIZUMAB PEGOL
     Indication: Product used for unknown indication
  94. CETIRIZINE HYDROCHLORIDE [Suspect]
     Active Substance: CETIRIZINE HYDROCHLORIDE
     Indication: Rheumatoid arthritis
     Route: 048
  95. CETIRIZINE HYDROCHLORIDE [Suspect]
     Active Substance: CETIRIZINE HYDROCHLORIDE
     Route: 048
  96. CETIRIZINE HYDROCHLORIDE\PSEUDOEPHEDRINE HYDROCHLORIDE [Suspect]
     Active Substance: CETIRIZINE HYDROCHLORIDE\PSEUDOEPHEDRINE HYDROCHLORIDE
     Indication: Rheumatoid arthritis
     Route: 067
  97. CETIRIZINE HYDROCHLORIDE\PSEUDOEPHEDRINE HYDROCHLORIDE [Suspect]
     Active Substance: CETIRIZINE HYDROCHLORIDE\PSEUDOEPHEDRINE HYDROCHLORIDE
     Indication: Product used for unknown indication
     Route: 048
  98. CETIRIZINE HYDROCHLORIDE\PSEUDOEPHEDRINE HYDROCHLORIDE [Suspect]
     Active Substance: CETIRIZINE HYDROCHLORIDE\PSEUDOEPHEDRINE HYDROCHLORIDE
  99. CHILDRENS IBUPROFEN [Suspect]
     Active Substance: IBUPROFEN
     Indication: Product used for unknown indication
  100. CHLORHEXIDINE ACETATE [Suspect]
     Active Substance: CHLORHEXIDINE ACETATE
     Indication: Product used for unknown indication
  101. CHLORHEXIDINE GLUCONATE\ISOPROPYL ALCOHOL [Suspect]
     Active Substance: CHLORHEXIDINE GLUCONATE\ISOPROPYL ALCOHOL
     Indication: Product used for unknown indication
  102. CHOLECALCIFEROL [Suspect]
     Active Substance: CHOLECALCIFEROL
     Indication: Product used for unknown indication
  103. CIMZIA [Suspect]
     Active Substance: CERTOLIZUMAB PEGOL
     Indication: Rheumatoid arthritis
     Route: 058
  104. CIMZIA [Suspect]
     Active Substance: CERTOLIZUMAB PEGOL
     Indication: Product used for unknown indication
  105. CORTISONE ACETATE [Suspect]
     Active Substance: CORTISONE ACETATE
     Indication: Rheumatoid arthritis
     Route: 048
  106. CORTISONE ACETATE [Suspect]
     Active Substance: CORTISONE ACETATE
  107. CORTISONE ACETATE [Suspect]
     Active Substance: CORTISONE ACETATE
  108. CORTISONE ACETATE [Suspect]
     Active Substance: CORTISONE ACETATE
     Route: 048
  109. DESOXIMETASONE [Suspect]
     Active Substance: DESOXIMETASONE
     Indication: Rheumatoid arthritis
     Route: 003
  110. DESOXIMETASONE [Suspect]
     Active Substance: DESOXIMETASONE
     Route: 048
  111. DESOXIMETASONE [Suspect]
     Active Substance: DESOXIMETASONE
     Route: 067
  112. DESOXIMETASONE [Suspect]
     Active Substance: DESOXIMETASONE
     Route: 058
  113. DESOXIMETASONE [Suspect]
     Active Substance: DESOXIMETASONE
     Route: 048
  114. DESOXIMETASONE [Suspect]
     Active Substance: DESOXIMETASONE
     Dosage: TOPICAL
  115. DESOXIMETASONE [Suspect]
     Active Substance: DESOXIMETASONE
     Route: 003
  116. ENBREL [Suspect]
     Active Substance: ETANERCEPT
     Indication: Rheumatoid arthritis
     Route: 058
  117. ENBREL [Suspect]
     Active Substance: ETANERCEPT
     Indication: Product used for unknown indication
     Route: 058
  118. ENBREL [Suspect]
     Active Substance: ETANERCEPT
     Route: 058
  119. ETANERCEPT [Suspect]
     Active Substance: ETANERCEPT
     Indication: Rheumatoid arthritis
     Route: 058
  120. ETANERCEPT [Suspect]
     Active Substance: ETANERCEPT
     Route: 058
  121. ETANERCEPT [Suspect]
     Active Substance: ETANERCEPT
  122. FLUMETHASONE PIVALATE [Suspect]
     Active Substance: FLUMETHASONE PIVALATE
     Indication: Rheumatoid arthritis
     Route: 058
  123. FLUMETHASONE PIVALATE [Suspect]
     Active Substance: FLUMETHASONE PIVALATE
     Indication: Product used for unknown indication
  124. FOLIC ACID [Suspect]
     Active Substance: FOLIC ACID
     Indication: Rheumatoid arthritis
     Route: 048
  125. FOLIC ACID [Suspect]
     Active Substance: FOLIC ACID
     Route: 048
  126. FOLIC ACID [Suspect]
     Active Substance: FOLIC ACID
     Route: 058
  127. FOLIC ACID [Suspect]
     Active Substance: FOLIC ACID
     Route: 048
  128. FOLIC ACID [Suspect]
     Active Substance: FOLIC ACID
     Route: 065
  129. FOLIC ACID [Suspect]
     Active Substance: FOLIC ACID
     Route: 065
  130. FOLIC ACID [Suspect]
     Active Substance: FOLIC ACID
     Route: 065
  131. FOLIC ACID [Suspect]
     Active Substance: FOLIC ACID
     Route: 065
  132. FOLIC ACID [Suspect]
     Active Substance: FOLIC ACID
     Route: 065
  133. FOLIC ACID [Suspect]
     Active Substance: FOLIC ACID
     Route: 065
  134. FOLIC ACID [Suspect]
     Active Substance: FOLIC ACID
     Route: 065
  135. METHOTREXATE [Suspect]
     Active Substance: METHOTREXATE
     Indication: Rheumatoid arthritis
  136. METHOTREXATE [Suspect]
     Active Substance: METHOTREXATE
     Route: 048
  137. METHOTREXATE [Suspect]
     Active Substance: METHOTREXATE
     Route: 048
  138. METHOTREXATE [Suspect]
     Active Substance: METHOTREXATE
     Route: 048
  139. METHOTREXATE [Suspect]
     Active Substance: METHOTREXATE
     Route: 048
  140. METHOTREXATE [Suspect]
     Active Substance: METHOTREXATE
     Route: 058
  141. METHOTREXATE [Suspect]
     Active Substance: METHOTREXATE
  142. METHOTREXATE [Suspect]
     Active Substance: METHOTREXATE
     Route: 058
  143. METHOTREXATE [Suspect]
     Active Substance: METHOTREXATE
  144. METHOTREXATE [Suspect]
     Active Substance: METHOTREXATE
     Route: 013
  145. METHOTREXATE [Suspect]
     Active Substance: METHOTREXATE
     Route: 048
  146. METHOTREXATE [Suspect]
     Active Substance: METHOTREXATE
     Route: 058
  147. METHOTREXATE [Suspect]
     Active Substance: METHOTREXATE
     Route: 013
  148. METHOTREXATE [Suspect]
     Active Substance: METHOTREXATE
     Route: 064
  149. METHOTREXATE [Suspect]
     Active Substance: METHOTREXATE
     Route: 042
  150. METHOTREXATE [Suspect]
     Active Substance: METHOTREXATE
     Route: 048
  151. METHOTREXATE [Suspect]
     Active Substance: METHOTREXATE
     Route: 064
  152. METHOTREXATE [Suspect]
     Active Substance: METHOTREXATE
     Route: 058
  153. METHOTREXATE [Suspect]
     Active Substance: METHOTREXATE
     Route: 013
  154. METHOTREXATE [Suspect]
     Active Substance: METHOTREXATE
     Route: 064
  155. CETIRIZINE HYDROCHLORIDE [Suspect]
     Active Substance: CETIRIZINE HYDROCHLORIDE
     Indication: Rheumatoid arthritis
     Route: 048
  156. CETIRIZINE HYDROCHLORIDE [Suspect]
     Active Substance: CETIRIZINE HYDROCHLORIDE
     Indication: Product used for unknown indication
     Route: 048
  157. CETIRIZINE HYDROCHLORIDE [Suspect]
     Active Substance: CETIRIZINE HYDROCHLORIDE
     Route: 067
  158. ACETAMINOPHEN [Suspect]
     Active Substance: ACETAMINOPHEN
     Indication: Product used for unknown indication
  159. ACTEMRA [Suspect]
     Active Substance: TOCILIZUMAB
     Indication: Rheumatoid arthritis
  160. ACTEMRA [Suspect]
     Active Substance: TOCILIZUMAB
  161. ACTEMRA [Suspect]
     Active Substance: TOCILIZUMAB
     Route: 048
  162. ACTEMRA [Suspect]
     Active Substance: TOCILIZUMAB
     Route: 042
  163. ACTEMRA [Suspect]
     Active Substance: TOCILIZUMAB
     Route: 016
  164. ACTEMRA [Suspect]
     Active Substance: TOCILIZUMAB
     Route: 042
  165. ACTEMRA [Suspect]
     Active Substance: TOCILIZUMAB
     Route: 042
  166. ACTEMRA [Suspect]
     Active Substance: TOCILIZUMAB
     Route: 042
  167. ADALIMUMAB [Suspect]
     Active Substance: ADALIMUMAB
     Indication: Rheumatoid arthritis
     Route: 058
  168. ALENDRONATE SODIUM [Suspect]
     Active Substance: ALENDRONATE SODIUM
     Indication: Rheumatoid arthritis
     Route: 016
  169. ALENDRONATE SODIUM [Suspect]
     Active Substance: ALENDRONATE SODIUM
     Indication: Product used for unknown indication
     Route: 048
  170. FOSAMAX [Suspect]
     Active Substance: ALENDRONATE SODIUM
     Indication: Rheumatoid arthritis
     Route: 048
  171. FOSAMAX [Suspect]
     Active Substance: ALENDRONATE SODIUM
     Indication: Product used for unknown indication
     Route: 016
  172. FOSAMAX [Suspect]
     Active Substance: ALENDRONATE SODIUM
     Route: 058
  173. HUMIRA [Suspect]
     Active Substance: ADALIMUMAB
     Indication: Rheumatoid arthritis
     Route: 058
  174. HUMIRA [Suspect]
     Active Substance: ADALIMUMAB
     Indication: Psoriatic arthropathy
     Route: 058
  175. HUMIRA [Suspect]
     Active Substance: ADALIMUMAB
     Route: 058
  176. HUMIRA [Suspect]
     Active Substance: ADALIMUMAB
     Route: 058
  177. HYDROCORTISONE [Suspect]
     Active Substance: HYDROCORTISONE
     Indication: Product used for unknown indication
  178. HYDROXYCHLOROQUINE [Suspect]
     Active Substance: HYDROXYCHLOROQUINE
     Indication: Rheumatoid arthritis
     Route: 005
  179. HYDROXYCHLOROQUINE [Suspect]
     Active Substance: HYDROXYCHLOROQUINE
  180. HYDROXYCHLOROQUINE [Suspect]
     Active Substance: HYDROXYCHLOROQUINE
  181. HYDROXYCHLOROQUINE [Suspect]
     Active Substance: HYDROXYCHLOROQUINE
     Route: 058
  182. HYDROXYCHLOROQUINE [Suspect]
     Active Substance: HYDROXYCHLOROQUINE
  183. HYDROXYCHLOROQUINE [Suspect]
     Active Substance: HYDROXYCHLOROQUINE
     Route: 048
  184. KEVZARA [Suspect]
     Active Substance: SARILUMAB
     Indication: Rheumatoid arthritis

REACTIONS (154)
  - Liver injury [Fatal]
  - Lung disorder [Fatal]
  - Oedema peripheral [Fatal]
  - Joint swelling [Fatal]
  - Psoriasis [Fatal]
  - Therapeutic response decreased [Fatal]
  - Nasopharyngitis [Fatal]
  - Malaise [Fatal]
  - Wound infection [Fatal]
  - Wound [Fatal]
  - Lupus vulgaris [Fatal]
  - Musculoskeletal stiffness [Fatal]
  - Muscular weakness [Fatal]
  - Laryngitis [Fatal]
  - Psoriatic arthropathy [Fatal]
  - Osteoporosis [Fatal]
  - Pneumonia [Fatal]
  - Lip dry [Fatal]
  - Sleep disorder [Fatal]
  - Walking aid user [Fatal]
  - Muscle spasms [Fatal]
  - Oedema [Fatal]
  - Respiratory disorder [Fatal]
  - Migraine [Fatal]
  - Red blood cell sedimentation rate increased [Fatal]
  - Night sweats [Fatal]
  - Pruritus [Fatal]
  - Nausea [Fatal]
  - Paraesthesia [Fatal]
  - Joint range of motion decreased [Fatal]
  - Pemphigus [Fatal]
  - Sinusitis [Fatal]
  - Upper respiratory tract infection [Fatal]
  - Pulmonary fibrosis [Fatal]
  - Pericarditis [Fatal]
  - Osteoarthritis [Fatal]
  - Pain [Fatal]
  - Hip arthroplasty [Fatal]
  - Peripheral venous disease [Fatal]
  - Swollen joint count increased [Fatal]
  - Synovitis [Fatal]
  - Lupus-like syndrome [Fatal]
  - Lower limb fracture [Fatal]
  - Type 2 diabetes mellitus [Fatal]
  - Rheumatoid arthritis [Fatal]
  - Vomiting [Fatal]
  - Muscle injury [Fatal]
  - Musculoskeletal pain [Fatal]
  - Sciatica [Fatal]
  - Prescribed underdose [Fatal]
  - Wheezing [Fatal]
  - Sleep disorder due to general medical condition, insomnia type [Fatal]
  - Liver function test increased [Fatal]
  - Insomnia [Fatal]
  - Systemic lupus erythematosus [Fatal]
  - Lower respiratory tract infection [Fatal]
  - Muscle spasticity [Fatal]
  - Visual impairment [Fatal]
  - Road traffic accident [Fatal]
  - Swelling [Fatal]
  - Peripheral swelling [Fatal]
  - Retinitis [Fatal]
  - Rheumatic fever [Fatal]
  - Stomatitis [Fatal]
  - Joint stiffness [Fatal]
  - Mobility decreased [Fatal]
  - Rheumatoid factor positive [Fatal]
  - Rash [Fatal]
  - Weight increased [Fatal]
  - Tachycardia [Fatal]
  - Memory impairment [Fatal]
  - X-ray abnormal [Fatal]
  - Weight decreased [Fatal]
  - Pain in extremity [Fatal]
  - Spinal fusion surgery [Fatal]
  - Pyrexia [Fatal]
  - Spondylitis [Fatal]
  - Urticaria [Fatal]
  - Knee arthroplasty [Fatal]
  - Obesity [Fatal]
  - Liver disorder [Fatal]
  - Seronegative arthritis [Fatal]
  - Abdominal discomfort [Fatal]
  - Alopecia [Fatal]
  - Amnesia [Fatal]
  - Anti-cyclic citrullinated peptide antibody [Fatal]
  - Anti-cyclic citrullinated peptide antibody positive [Fatal]
  - Anxiety [Fatal]
  - Arthritis [Fatal]
  - Autoimmune disorder [Fatal]
  - Bone erosion [Fatal]
  - C-reactive protein abnormal [Fatal]
  - Chest pain [Fatal]
  - Contusion [Fatal]
  - Crohn^s disease [Fatal]
  - Deep vein thrombosis postoperative [Fatal]
  - Delirium [Fatal]
  - Diarrhoea [Fatal]
  - Discomfort [Fatal]
  - Abdominal pain [Fatal]
  - Abdominal pain upper [Fatal]
  - Adjustment disorder with depressed mood [Fatal]
  - Arthralgia [Fatal]
  - Arthropathy [Fatal]
  - Asthenia [Fatal]
  - Asthma [Fatal]
  - Blister [Fatal]
  - Blood cholesterol increased [Fatal]
  - Breast cancer stage II [Fatal]
  - Bronchitis [Fatal]
  - Bursitis [Fatal]
  - C-reactive protein [Fatal]
  - C-reactive protein increased [Fatal]
  - Confusional state [Fatal]
  - Decreased appetite [Fatal]
  - Depression [Fatal]
  - Dislocation of vertebra [Fatal]
  - Dizziness [Fatal]
  - Drug hypersensitivity [Fatal]
  - Dry mouth [Fatal]
  - Dyspepsia [Fatal]
  - Dyspnoea [Fatal]
  - Exostosis [Fatal]
  - Fatigue [Fatal]
  - Gait disturbance [Fatal]
  - Gastrointestinal disorder [Fatal]
  - Grip strength decreased [Fatal]
  - Helicobacter infection [Fatal]
  - Hepatic cirrhosis [Fatal]
  - Hepatic enzyme increased [Fatal]
  - Hypercholesterolaemia [Fatal]
  - Impaired healing [Fatal]
  - Duodenal ulcer perforation [Fatal]
  - Facet joint syndrome [Fatal]
  - Ear infection [Fatal]
  - Ear pain [Fatal]
  - Fibromyalgia [Fatal]
  - Folliculitis [Fatal]
  - Foot deformity [Fatal]
  - Gait inability [Fatal]
  - General physical health deterioration [Fatal]
  - Glossodynia [Fatal]
  - Hand deformity [Fatal]
  - Headache [Fatal]
  - Hypersensitivity [Fatal]
  - Hypertension [Fatal]
  - Hypoaesthesia [Fatal]
  - Ill-defined disorder [Fatal]
  - Infection [Fatal]
  - Inflammation [Fatal]
  - Infusion related reaction [Fatal]
  - Injury [Fatal]
  - Irritable bowel syndrome [Fatal]
  - Joint dislocation [Fatal]
